FAERS Safety Report 5331303-4 (Version None)
Quarter: 2007Q2

REPORT INFORMATION
  Report Type: 
  Country: None (occurrence: None)
  Receive Date: 20070301
  Receipt Date: 20060613
  Transmission Date: 20071010
  Serious: Yes (Other)
  Sender: FDA-Public Use
  Company Number: 2636

PATIENT
  Age: 41 Year
  Sex: Female

DRUGS (1)
  1. AMNESTEEM [Suspect]
     Indication: ACNE
     Dosage: 40 MG, BID, PO
     Route: 048
     Dates: start: 20060608, end: 20060611

REACTIONS (4)
  - LIP DRY [None]
  - MOOD ALTERED [None]
  - NAUSEA [None]
  - SWELLING FACE [None]
